FAERS Safety Report 12845369 (Version 1)
Quarter: 2016Q4

REPORT INFORMATION
  Report Type: Report from Study
  Country: BR (occurrence: BR)
  Receive Date: 20161013
  Receipt Date: 20161013
  Transmission Date: 20170207
  Serious: Yes (Other)
  Sender: FDA-Public Use
  Company Number: PHHY2016BR139687

PATIENT
  Sex: Male
  Weight: 54 kg

DRUGS (2)
  1. SANDOSTATIN LAR DEPOT [Suspect]
     Active Substance: OCTREOTIDE ACETATE
     Indication: METASTASES TO LIVER
  2. SANDOSTATIN LAR DEPOT [Suspect]
     Active Substance: OCTREOTIDE ACETATE
     Indication: GASTRIC NEOPLASM
     Dosage: 30 MG, QMO (ONCE A MONTH)
     Route: 030
     Dates: start: 2012

REACTIONS (3)
  - Product use issue [Unknown]
  - Blood chromogranin A increased [Unknown]
  - Hepatic neoplasm [Unknown]
